FAERS Safety Report 4441543-4 (Version None)
Quarter: 2004Q3

REPORT INFORMATION
  Report Type: 
  Country: None (occurrence: None)
  Receive Date: 20040728
  Receipt Date: 20040223
  Transmission Date: 20050211
  Serious: No
  Sender: FDA-Public Use
  Company Number: US_0403101230

PATIENT
  Age: 31 Year
  Sex: Male
  Weight: 78 kg

DRUGS (2)
  1. STRATTERA [Suspect]
     Indication: ATTENTION DEFICIT/HYPERACTIVITY DISORDER
     Dosage: 60 MG/1 DAY
     Dates: start: 20040216
  2. FIBERCON (POLYCARBOPHIL CALCIUM) [Concomitant]

REACTIONS (4)
  - CONSTIPATION [None]
  - FEELING JITTERY [None]
  - MIDDLE INSOMNIA [None]
  - NERVOUSNESS [None]
